FAERS Safety Report 5917503-0 (Version None)
Quarter: 2008Q4

REPORT INFORMATION
  Report Type: 
  Country: None (occurrence: None)
  Receive Date: 20081010
  Receipt Date: 20081010
  Transmission Date: 20090506
  Serious: Yes (Other)
  Sender: FDA-Public Use
  Company Number: None

PATIENT
  Age: 75 Year
  Sex: Female

DRUGS (1)
  1. FENTANYL TRANSDERMAL SYSTEM [Suspect]
     Indication: SKELETAL INJURY
     Dosage: 50MCG Q72H TRANSDERMAL
     Route: 062
     Dates: start: 20080930, end: 20080930

REACTIONS (3)
  - AGITATION [None]
  - HYPERTENSION [None]
  - TREMOR [None]
